FAERS Safety Report 5835680-7 (Version None)
Quarter: 2008Q3

REPORT INFORMATION
  Report Type: 
  Country: None (occurrence: None)
  Receive Date: 20080806
  Receipt Date: 20080729
  Transmission Date: 20090109
  Serious: Yes (Other)
  Sender: FDA-Public Use
  Company Number: NL-WYE-G01916608

PATIENT
  Age: 53 Year
  Sex: Female
  Weight: 60 kg

DRUGS (2)
  1. EFFEXOR XR [Suspect]
     Indication: DEPRESSION
     Dates: start: 20030601
  2. EFFEXOR XR [Suspect]
     Dosage: TAPERED AND STOPPED

REACTIONS (4)
  - DRUG WITHDRAWAL SYNDROME [None]
  - INFLAMMATION [None]
  - NEURALGIA [None]
  - TOOTHACHE [None]
